FAERS Safety Report 4735633-6 (Version None)
Quarter: 2005Q3

REPORT INFORMATION
  Report Type: 
  Country: None (occurrence: None)
  Receive Date: 20050805
  Receipt Date: 20050519
  Transmission Date: 20060218
  Serious: Yes (Hospitalization, Other)
  Sender: FDA-Public Use
  Company Number: FR-GLAXOSMITHKLINE-B0382344A

PATIENT
  Age: 31 Year
  Sex: Male

DRUGS (1)
  1. ZYNTABAC [Suspect]
     Indication: SMOKING CESSATION THERAPY
     Dosage: 300MG PER DAY
     Route: 065
     Dates: start: 20050410

REACTIONS (4)
  - EPILEPSY [None]
  - FACIAL BONES FRACTURE [None]
  - FIBULA FRACTURE [None]
  - ILL-DEFINED DISORDER [None]
